FAERS Safety Report 5195946-3 (Version None)
Quarter: 2007Q1

REPORT INFORMATION
  Report Type: 
  Country: None (occurrence: None)
  Receive Date: 20070102
  Receipt Date: 20061219
  Transmission Date: 20070707
  Serious: Yes (Hospitalization)
  Sender: FDA-Public Use
  Company Number: TR-ELI_LILLY_AND_COMPANY-TR200610000880

PATIENT
  Age: 65 Year
  Sex: Female
  Weight: 40 kg

DRUGS (2)
  1. FORTEO [Suspect]
     Indication: OSTEOPOROSIS
     Dosage: 20 UNK, UNK
     Dates: start: 20060612
  2. DELIX [Concomitant]
     Dosage: UNK UNK, 2/D
     Route: 048
     Dates: end: 20060928

REACTIONS (3)
  - BRADYCARDIA [None]
  - HYPOTENSION [None]
  - PSORIASIS [None]
